APPROVED DRUG PRODUCT: TIKOSYN
Active Ingredient: DOFETILIDE
Strength: 0.5MG
Dosage Form/Route: CAPSULE;ORAL
Application: N020931 | Product #003 | TE Code: AB
Applicant: PFIZER PHARMACEUTICALS PRODUCTION CORP LTD
Approved: Oct 1, 1999 | RLD: Yes | RS: Yes | Type: RX